FAERS Safety Report 7453608-3 (Version None)
Quarter: 2011Q2

REPORT INFORMATION
  Report Type: 
  Country: None (occurrence: None)
  Receive Date: 20110502
  Receipt Date: 20110421
  Transmission Date: 20111010
  Serious: Yes (Hospitalization)
  Sender: FDA-Public Use
  Company Number: US-ASTRAZENECA-2010SE39321

PATIENT
  Age: 16092 Day
  Sex: Male
  Weight: 83.9 kg

DRUGS (26)
  1. SEROQUEL [Suspect]
     Route: 048
     Dates: start: 20100701, end: 20100701
  2. SEROQUEL [Suspect]
     Route: 048
  3. XANAX [Concomitant]
     Dosage: PRN
     Route: 048
  4. OXYCODONE [Concomitant]
     Indication: INTERVERTEBRAL DISC DISORDER
     Dosage: 10/650 MG AS REQUIRED
  5. CRESTOR [Interacting]
     Indication: HYPERCHOLESTEROLAEMIA
     Route: 048
  6. SEROQUEL [Suspect]
     Route: 048
     Dates: start: 20100701, end: 20100701
  7. SEROQUEL [Suspect]
     Route: 048
  8. GEMFIBROZIL [Interacting]
     Indication: HYPERCHOLESTEROLAEMIA
     Route: 048
  9. GEMFIBROZIL [Interacting]
     Route: 048
  10. PROTONIX [Concomitant]
     Indication: ULCER
     Route: 048
  11. AMOXICILLIN [Concomitant]
     Indication: TOOTH DISORDER
  12. IBUPROFEN [Concomitant]
     Indication: TOOTH DISORDER
  13. METFORMIN HYDROCHLORIDE [Concomitant]
     Indication: DIABETES MELLITUS
     Route: 048
  14. MULTI-VITAMINS [Concomitant]
  15. SEROQUEL [Suspect]
     Indication: HALLUCINATION, AUDITORY
     Route: 048
     Dates: start: 20050101
  16. PROTONIX [Concomitant]
     Indication: GASTROOESOPHAGEAL REFLUX DISEASE
     Route: 048
  17. EFFEXOR XR [Suspect]
     Indication: DEPRESSION
     Route: 048
  18. NOVOLOG [Concomitant]
     Indication: DIABETES MELLITUS
     Dosage: AS REQUIRED
     Route: 050
  19. SEROQUEL [Suspect]
     Indication: HALLUCINATION
     Route: 048
     Dates: start: 20050101
  20. SEROQUEL [Suspect]
     Route: 048
     Dates: start: 20100701, end: 20100701
  21. SEROQUEL [Suspect]
     Route: 048
  22. XANAX [Concomitant]
     Indication: ANXIETY
     Route: 048
  23. GLIPIZIDE [Concomitant]
     Indication: DIABETES MELLITUS
     Route: 048
  24. LEVAMIR [Concomitant]
     Indication: DIABETES MELLITUS
     Dosage: AS REQUIRED
     Route: 050
  25. SEROQUEL [Suspect]
     Indication: BIPOLAR DISORDER
     Route: 048
     Dates: start: 20050101
  26. OXYCODONE [Concomitant]
     Indication: ARTHRALGIA
     Dosage: 10/650 MG AS REQUIRED

REACTIONS (17)
  - HEADACHE [None]
  - DRUG INEFFECTIVE [None]
  - EATING DISORDER [None]
  - TOOTH EXTRACTION [None]
  - DRUG DOSE OMISSION [None]
  - GINGIVAL INFECTION [None]
  - IRRITABILITY [None]
  - TESTICULAR CYST [None]
  - FEELING ABNORMAL [None]
  - MOOD SWINGS [None]
  - DRUG INTERACTION [None]
  - CYST REMOVAL [None]
  - HYPERGLYCAEMIA [None]
  - LETHARGY [None]
  - ANXIETY [None]
  - BONE PAIN [None]
  - BLOOD CHOLESTEROL INCREASED [None]
